FAERS Safety Report 14529576 (Version 1)
Quarter: 2018Q1

REPORT INFORMATION
  Report Type: Spontaneous
  Country: US (occurrence: US)
  Receive Date: 20180213
  Receipt Date: 20180213
  Transmission Date: 20180509
  Serious: No
  Sender: FDA-Public Use
  Company Number: None

PATIENT
  Age: 61 Year
  Sex: Male
  Weight: 65.77 kg

DRUGS (6)
  1. LISINOPRIL. [Concomitant]
     Active Substance: LISINOPRIL
  2. LOMOTIL [Suspect]
     Active Substance: ATROPINE SULFATE\DIPHENOXYLATE HYDROCHLORIDE
     Indication: IRRITABLE BOWEL SYNDROME
     Dosage: 3 PER DAY CUT DOWN TO 1 SOMETIMES AT NIGHT, MOUTH
     Route: 048
     Dates: start: 200709, end: 200810
  3. DICYCLOMINE [Concomitant]
     Active Substance: DICYCLOMINE HYDROCHLORIDE
  4. MELOXICAM. [Concomitant]
     Active Substance: MELOXICAM
  5. ALPRAZOLAM. [Concomitant]
     Active Substance: ALPRAZOLAM
  6. HYDROCODINE/ACET [Concomitant]

REACTIONS (11)
  - Nausea [None]
  - Chest pain [None]
  - Fatigue [None]
  - Diarrhoea [None]
  - Restlessness [None]
  - Headache [None]
  - Weight decreased [None]
  - Constipation [None]
  - Dizziness [None]
  - Dyspnoea [None]
  - Malaise [None]

NARRATIVE: CASE EVENT DATE: 20170503
